FAERS Safety Report 6896612-6 (Version None)
Quarter: 2010Q3

REPORT INFORMATION
  Report Type: 
  Country: None (occurrence: None)
  Receive Date: 20100802
  Receipt Date: 20070118
  Transmission Date: 20110219
  Serious: No
  Sender: FDA-Public Use
  Company Number: US-PFIZER INC-2007005943

PATIENT
  Sex: Male
  Weight: 85.28 kg

DRUGS (3)
  1. LYRICA [Suspect]
     Indication: NEURALGIA
     Dates: start: 20060101, end: 20070118
  2. LYRICA [Suspect]
     Indication: SJOGREN'S SYNDROME
  3. PLAQUENIL [Concomitant]
     Indication: SJOGREN'S SYNDROME
     Dates: start: 20060101

REACTIONS (2)
  - ABDOMINAL DISCOMFORT [None]
  - DRUG INEFFECTIVE [None]
